FAERS Safety Report 9854640 (Version 1)
Quarter: 2014Q1

REPORT INFORMATION
  Report Type: Spontaneous
  Country: US (occurrence: US)
  Receive Date: 20140130
  Receipt Date: 20140130
  Transmission Date: 20141002
  Serious: No
  Sender: FDA-Public Use
  Company Number: US-BIOGENIDEC-2014BI008042

PATIENT
  Sex: Female

DRUGS (9)
  1. TECFIDERA [Suspect]
     Indication: MULTIPLE SCLEROSIS
     Route: 048
     Dates: start: 20130717
  2. COQ-10 [Concomitant]
  3. GABAPENTIN [Concomitant]
  4. LEVOTHYROXINE SODIUM [Concomitant]
  5. MECLIZINE HCL [Concomitant]
  6. MOTRIN IB [Concomitant]
  7. TOPAMAX [Concomitant]
  8. VITAMIN B12 [Concomitant]
  9. VITAMIN D [Concomitant]

REACTIONS (1)
  - Myalgia [Unknown]
